FAERS Safety Report 23294308 (Version 1)
Quarter: 2023Q4

REPORT INFORMATION
  Report Type: Spontaneous
  Country: FR (occurrence: FR)
  Receive Date: 20231213
  Receipt Date: 20231213
  Transmission Date: 20240110
  Serious: Yes (Life-Threatening)
  Sender: FDA-Public Use
  Company Number: None

PATIENT
  Age: 86 Year
  Sex: Male
  Weight: 86 kg

DRUGS (18)
  1. OXALIPLATIN [Suspect]
     Active Substance: OXALIPLATIN
     Indication: Colorectal cancer metastatic
     Dosage: C1D1
     Route: 042
     Dates: start: 20230111, end: 20230111
  2. OXALIPLATIN [Suspect]
     Active Substance: OXALIPLATIN
     Dosage: C2D1
     Route: 042
     Dates: start: 20230131, end: 20230131
  3. LEVOLEUCOVORIN CALCIUM [Suspect]
     Active Substance: LEVOLEUCOVORIN CALCIUM
     Indication: Colorectal cancer metastatic
     Route: 042
     Dates: end: 20230321
  4. LEVOLEUCOVORIN CALCIUM [Suspect]
     Active Substance: LEVOLEUCOVORIN CALCIUM
     Route: 042
     Dates: start: 20230131, end: 20230131
  5. LEVOLEUCOVORIN CALCIUM [Suspect]
     Active Substance: LEVOLEUCOVORIN CALCIUM
     Route: 042
     Dates: start: 20230215, end: 20230215
  6. LEVOLEUCOVORIN CALCIUM [Suspect]
     Active Substance: LEVOLEUCOVORIN CALCIUM
     Route: 042
     Dates: start: 20230111, end: 20230111
  7. ATORVASTATIN [Concomitant]
     Active Substance: ATORVASTATIN
     Indication: Dyslipidaemia
     Dosage: 10MG
     Route: 048
  8. LEVOTHYROXINE SODIUM [Concomitant]
     Active Substance: LEVOTHYROXINE SODIUM
     Indication: Hypothyroidism
     Dosage: 50MCG
     Route: 048
  9. XARELTO 10 mg, film-coated tablet [Concomitant]
     Indication: Deep vein thrombosis
     Dosage: 1 DOSAGE FORM
     Route: 048
  10. FLUOROURACIL [Concomitant]
     Active Substance: FLUOROURACIL
     Indication: Colorectal cancer metastatic
     Route: 042
     Dates: start: 20230131, end: 20230131
  11. FLUOROURACIL [Concomitant]
     Active Substance: FLUOROURACIL
     Route: 042
     Dates: start: 20230111, end: 20230111
  12. FLUOROURACIL [Concomitant]
     Active Substance: FLUOROURACIL
     Route: 042
     Dates: start: 20230215, end: 20230215
  13. FLUOROURACIL [Concomitant]
     Active Substance: FLUOROURACIL
     Route: 042
     Dates: start: 20230321, end: 20230321
  14. VECTIBIX 20 mg/ml, solution for diluted infusion [Concomitant]
     Indication: Colorectal cancer metastatic
     Route: 042
     Dates: start: 20230215, end: 20230215
  15. VECTIBIX 20 mg/ml, solution for diluted infusion [Concomitant]
     Route: 042
     Dates: start: 20230111, end: 20230111
  16. VECTIBIX 20 mg/ml, solution for diluted infusion [Concomitant]
     Route: 042
     Dates: start: 20230131, end: 20230131
  17. IRINOTECAN [Concomitant]
     Active Substance: IRINOTECAN
     Indication: Colorectal cancer metastatic
     Route: 042
     Dates: start: 20230215, end: 20230215
  18. IRINOTECAN [Concomitant]
     Active Substance: IRINOTECAN
     Route: 042
     Dates: start: 20230321, end: 20230321

REACTIONS (1)
  - Anaphylactic shock [Recovered/Resolved]

NARRATIVE: CASE EVENT DATE: 20230131
